FAERS Safety Report 9424797 (Version 1)
Quarter: 2013Q3

REPORT INFORMATION
  Report Type: Spontaneous
  Country: HR (occurrence: HR)
  Receive Date: 20130729
  Receipt Date: 20130729
  Transmission Date: 20140515
  Serious: Yes (Other)
  Sender: FDA-Public Use
  Company Number: HR-009507513-1307HRV014721

PATIENT
  Age: 69 Year
  Sex: Female
  Weight: 65 kg

DRUGS (7)
  1. SINGULAIR [Suspect]
     Indication: ASTHMA
     Dosage: 10 MG, QD
     Route: 048
     Dates: start: 20120315, end: 20121001
  2. MEMANTINE HYDROCHLORIDE [Suspect]
     Indication: ASTHMA
     Dosage: UNK
     Route: 048
     Dates: start: 2012, end: 2012
  3. ZOLOFT [Concomitant]
     Indication: DEPRESSION
     Route: 048
  4. LERCANIDIPINE HYDROCHLORIDE [Concomitant]
     Indication: HYPERTENSION
     Dosage: 10 MG, QD
     Route: 048
  5. NORMABEL [Concomitant]
     Indication: DEPRESSION
     Dosage: 20 MG
     Route: 048
  6. NEBIVOLOL PLIVA [Concomitant]
     Indication: HYPERTENSION
     Dosage: 5 MG
     Route: 048
  7. RIZOLIPASE [Concomitant]
     Indication: BLOOD CHOLESTEROL INCREASED
     Dosage: 500 MG, BID
     Route: 048

REACTIONS (8)
  - Dry mouth [Recovered/Resolved]
  - Anxiety [Recovered/Resolved]
  - Myopathy [Recovered/Resolved]
  - Poor quality sleep [Recovered/Resolved]
  - Nightmare [Recovered/Resolved]
  - Fatigue [Recovered/Resolved]
  - Myalgia [Recovered/Resolved]
  - Oedema [Recovered/Resolved]
